FAERS Safety Report 5443180-1 (Version None)
Quarter: 2007Q2

REPORT INFORMATION
  Report Type: 
  Country: None (occurrence: None)
  Receive Date: 20070606
  Receipt Date: 20070528
  Transmission Date: 20071010
  Serious: Yes (Other)
  Sender: FDA-Public Use
  Company Number: AECAN200700128

PATIENT
  Age: 45 Year
  Sex: Male
  Weight: 75.6 kg

DRUGS (1)
  1. IMMUNE GLOBULIN (HUMAN) [Suspect]
     Indication: IMMUNODEFICIENCY COMMON VARIABLE
     Dates: start: 20070525, end: 20070525

REACTIONS (4)
  - ABDOMINAL PAIN [None]
  - CHEST DISCOMFORT [None]
  - INFUSION RELATED REACTION [None]
  - THROAT TIGHTNESS [None]
